FAERS Safety Report 13002024 (Version 1)
Quarter: 2016Q4

REPORT INFORMATION
  Report Type: Spontaneous
  Country: JP (occurrence: JP)
  Receive Date: 20161206
  Receipt Date: 20161206
  Transmission Date: 20170207
  Serious: Yes (Death, Other)
  Sender: FDA-Public Use
  Company Number: JP-JNJFOC-20161202341

PATIENT
  Age: 9 Decade
  Sex: Male

DRUGS (4)
  1. PREDNISOLONE. [Concomitant]
     Active Substance: PREDNISOLONE
     Indication: HORMONE-REFRACTORY PROSTATE CANCER
     Route: 048
     Dates: start: 201606
  2. ZOMETA [Concomitant]
     Active Substance: ZOLEDRONIC ACID
     Indication: HYPERCALCAEMIA
     Route: 065
     Dates: start: 201512
  3. ZOMETA [Concomitant]
     Active Substance: ZOLEDRONIC ACID
     Indication: ELECTROLYTE IMBALANCE
     Route: 065
     Dates: start: 201512
  4. ZYTIGA [Suspect]
     Active Substance: ABIRATERONE ACETATE
     Indication: HORMONE-REFRACTORY PROSTATE CANCER
     Route: 048
     Dates: start: 201606, end: 201610

REACTIONS (3)
  - Ureteric obstruction [Unknown]
  - Death [Fatal]
  - Hypokalaemia [Unknown]

NARRATIVE: CASE EVENT DATE: 201608
